FAERS Safety Report 7463221-X (Version None)
Quarter: 2011Q2

REPORT INFORMATION
  Report Type: 
  Country: None (occurrence: None)
  Receive Date: 20110506
  Receipt Date: 20110427
  Transmission Date: 20111010
  Serious: Yes (Death, Hospitalization)
  Sender: FDA-Public Use
  Company Number: US-CELGENEUS-163-21880-10090901

PATIENT
  Sex: Female

DRUGS (13)
  1. GABAPENTIN [Concomitant]
     Dosage: 300 MILLIGRAM
     Route: 048
     Dates: start: 20100701, end: 20100811
  2. PROCRIT [Suspect]
     Route: 065
  3. MACROBID [Concomitant]
     Dosage: 100 MILLIGRAM
     Route: 048
     Dates: start: 20100624, end: 20100811
  4. DURAGESIC [Concomitant]
     Dosage: 25 MICROGRAM
     Route: 061
     Dates: start: 20100811
  5. LABETALOL [Concomitant]
     Indication: BLOOD PRESSURE INCREASED
     Route: 065
  6. ARANESP [Suspect]
     Dosage: 300 MICROGRAM
     Route: 058
  7. NARCAN [Concomitant]
     Route: 065
  8. CIPRO [Concomitant]
     Route: 065
  9. ZOSYN [Concomitant]
  10. REVLIMID [Suspect]
     Indication: MULTIPLE MYELOMA
     Dosage: 25 MILLIGRAM
     Route: 048
     Dates: start: 20100602, end: 20100811
  11. NEUPOGEN [Suspect]
     Dosage: 480 MICROGRAM
     Route: 065
  12. NOVOLIN R [Concomitant]
     Dosage: SCALE
     Route: 065
  13. NEXIUM [Concomitant]
     Dosage: 40 MILLIGRAM
     Route: 051

REACTIONS (8)
  - BACK PAIN [None]
  - ATRIAL FIBRILLATION [None]
  - PLATELET COUNT DECREASED [None]
  - ANAEMIA [None]
  - ASTHENIA [None]
  - MALAISE [None]
  - URINARY TRACT INFECTION [None]
  - EMBOLIC STROKE [None]
